FAERS Safety Report 20063413 (Version 1)
Quarter: 2021Q4

REPORT INFORMATION
  Report Type: Other
  Country: US (occurrence: None)
  Receive Date: 20211112
  Receipt Date: 20211112
  Transmission Date: 20220303
  Serious: Yes (Other)
  Sender: FDA-Public Use
  Company Number: US-ROCHE-2952824

PATIENT

DRUGS (1)
  1. ATEZOLIZUMAB [Suspect]
     Active Substance: ATEZOLIZUMAB
     Indication: Neoplasm malignant
     Route: 065

REACTIONS (13)
  - Dermatitis [Unknown]
  - Colitis [Unknown]
  - Pneumonitis [Unknown]
  - Hepatitis [Unknown]
  - Hypothyroidism [Unknown]
  - Diabetes mellitus [Unknown]
  - Hypophysitis [Unknown]
  - Adrenal insufficiency [Unknown]
  - Nephritis [Unknown]
  - Pancreatitis [Unknown]
  - Stomatitis [Unknown]
  - Myocarditis [Unknown]
  - Thyroiditis [Unknown]
